FAERS Safety Report 25827723 (Version 2)
Quarter: 2025Q4

REPORT INFORMATION
  Report Type: Spontaneous
  Country: US (occurrence: US)
  Receive Date: 20250921
  Receipt Date: 20251006
  Transmission Date: 20260117
  Serious: Yes (Life-Threatening, Hospitalization)
  Sender: TEVA
  Company Number: US-TEVA-VS-3373742

PATIENT
  Age: 64 Year
  Sex: Male

DRUGS (3)
  1. EPINEPHRINE [Suspect]
     Active Substance: EPINEPHRINE
     Indication: Cardiogenic shock
     Dosage: EPINEPHRINE
     Route: 065
  2. MILRINONE [Suspect]
     Active Substance: MILRINONE
     Indication: Cardiogenic shock
     Route: 065
  3. DEVICE [Suspect]
     Active Substance: DEVICE

REACTIONS (1)
  - Drug ineffective [Unknown]
